FAERS Safety Report 7982110-5 (Version None)
Quarter: 2011Q4

REPORT INFORMATION
  Report Type: 
  Country: None (occurrence: None)
  Receive Date: 20111212
  Receipt Date: 20111123
  Transmission Date: 20120403
  Serious: Yes (Hospitalization, Other)
  Sender: FDA-Public Use
  Company Number: 2009SP023433

PATIENT
  Age: 27 Year
  Sex: Female
  Weight: 113.3993 kg

DRUGS (1)
  1. NUVARING [Suspect]
     Indication: CONTRACEPTION
     Dates: start: 20061001, end: 20070201

REACTIONS (20)
  - PLEURITIC PAIN [None]
  - MUSCLE STRAIN [None]
  - MENORRHAGIA [None]
  - THROMBOSIS [None]
  - PREGNANCY [None]
  - MATERNAL EXPOSURE DURING PREGNANCY [None]
  - MUSCLE SPASMS [None]
  - BREAST CYST [None]
  - STRESS [None]
  - BREAST FIBROMA [None]
  - CERVICITIS [None]
  - PARAESTHESIA [None]
  - PULMONARY EMBOLISM [None]
  - CERVICAL DYSPLASIA [None]
  - BRONCHITIS [None]
  - HEADACHE [None]
  - BACK PAIN [None]
  - HYPOAESTHESIA [None]
  - TREATMENT NONCOMPLIANCE [None]
  - PAIN [None]
